FAERS Safety Report 7957395-1 (Version None)
Quarter: 2011Q4

REPORT INFORMATION
  Report Type: 
  Country: None (occurrence: None)
  Receive Date: 20111205
  Receipt Date: 20111124
  Transmission Date: 20120403
  Serious: Yes (Hospitalization)
  Sender: FDA-Public Use
  Company Number: JP-MERCK-0910USA01692

PATIENT
  Age: 25 Year
  Sex: Female

DRUGS (2)
  1. COZAAR [Suspect]
     Indication: LUPUS NEPHRITIS
     Route: 048
     Dates: start: 19990101
  2. PREDNISOLONE [Concomitant]
     Indication: LUPUS NEPHRITIS
     Route: 048

REACTIONS (3)
  - RENAL IMPAIRMENT [None]
  - MATERNAL EXPOSURE DURING PREGNANCY [None]
  - OLIGOHYDRAMNIOS [None]
